FAERS Safety Report 26027144 (Version 1)
Quarter: 2025Q4

REPORT INFORMATION
  Report Type: Spontaneous
  Country: US (occurrence: US)
  Receive Date: 20251111
  Receipt Date: 20251111
  Transmission Date: 20260117
  Serious: No
  Sender: PFIZER
  Company Number: US-PFIZER INC-202500208158

PATIENT
  Age: 66 Year
  Sex: Female

DRUGS (4)
  1. VELSIPITY [Interacting]
     Active Substance: ETRASIMOD ARGININE
     Dosage: 2 MG, TAKE 1 TABLET BY MOUTH DAILY
     Route: 048
  2. LEFLUNOMIDE [Interacting]
     Active Substance: LEFLUNOMIDE
     Dosage: UNK
  3. HYDROXYCHLOROQUINE [Interacting]
     Active Substance: HYDROXYCHLOROQUINE
  4. BISOPROLOL [Interacting]
     Active Substance: BISOPROLOL

REACTIONS (4)
  - Off label use [Unknown]
  - Labelled drug-drug interaction medication error [Unknown]
  - Dizziness [Unknown]
  - Fatigue [Unknown]
